FAERS Safety Report 7494558-6 (Version None)
Quarter: 2011Q2

REPORT INFORMATION
  Report Type: 
  Country: None (occurrence: None)
  Receive Date: 20110520
  Receipt Date: 20110513
  Transmission Date: 20111010
  Serious: Yes (Hospitalization)
  Sender: FDA-Public Use
  Company Number: PHHO2011KR08423

PATIENT
  Sex: Female
  Weight: 60 kg

DRUGS (1)
  1. EVEROLIMUS [Suspect]
     Indication: THYROID CANCER
     Dosage: 10 MG, QD
     Route: 048
     Dates: start: 20110420, end: 20110501

REACTIONS (2)
  - NEUTROPENIA [None]
  - MYALGIA [None]
